FAERS Safety Report 12941280 (Version 1)
Quarter: 2016Q4

REPORT INFORMATION
  Report Type: Spontaneous
  Country: US (occurrence: US)
  Receive Date: 20161115
  Receipt Date: 20161115
  Transmission Date: 20170207
  Serious: Yes (Hospitalization)
  Sender: FDA-Public Use
  Company Number: None

PATIENT
  Age: 52 Year
  Sex: Female
  Weight: 80 kg

DRUGS (12)
  1. ESTRACE [Concomitant]
     Active Substance: ESTRADIOL
  2. LASIX [Concomitant]
     Active Substance: FUROSEMIDE
  3. PHENERGAN [Concomitant]
     Active Substance: PROMETHAZINE HYDROCHLORIDE
  4. TOPROL XL [Concomitant]
     Active Substance: METOPROLOL SUCCINATE
  5. GABAPENTIN. [Suspect]
     Active Substance: GABAPENTIN
  6. NEURONTIN [Concomitant]
     Active Substance: GABAPENTIN
  7. ATIVAN [Suspect]
     Active Substance: LORAZEPAM
     Indication: PAIN
     Route: 048
  8. BACLOFEN. [Suspect]
     Active Substance: BACLOFEN
  9. COLACE [Concomitant]
     Active Substance: DOCUSATE SODIUM
  10. OXYCODONE [Suspect]
     Active Substance: OXYCODONE
     Indication: PAIN
     Dosage: 15MG IR Q6HRS PRN PO
     Route: 048
  11. PRILOSEC [Concomitant]
     Active Substance: OMEPRAZOLE MAGNESIUM
  12. VITAMIN D [Concomitant]
     Active Substance: CHOLECALCIFEROL

REACTIONS (3)
  - Somnolence [None]
  - Hepatic encephalopathy [None]
  - Metabolic disorder [None]

NARRATIVE: CASE EVENT DATE: 20150902
